FAERS Safety Report 4443364-5 (Version None)
Quarter: 2004Q3

REPORT INFORMATION
  Report Type: 
  Country: None (occurrence: None)
  Receive Date: 20040908
  Receipt Date: 20040831
  Transmission Date: 20050211
  Serious: Yes (Other)
  Sender: FDA-Public Use
  Company Number: PHBS2004DE11623

PATIENT
  Age: 54 Year
  Sex: Female

DRUGS (1)
  1. SANDOSTATIN LAR [Suspect]
     Indication: CARCINOID SYNDROME
     Dosage: 30 MG

REACTIONS (18)
  - ADRENALECTOMY [None]
  - DEPRESSION [None]
  - DIABETES MELLITUS [None]
  - ECTOPIC ACTH SYNDROME [None]
  - FLUID OVERLOAD [None]
  - HYPERCORTICOIDISM [None]
  - HYPERTENSION [None]
  - HYPOKALAEMIA [None]
  - MEMORY IMPAIRMENT [None]
  - MUSCLE ATROPHY [None]
  - MUSCULAR WEAKNESS [None]
  - NOCTURIA [None]
  - PALPITATIONS [None]
  - PANCREATECTOMY [None]
  - POLYURIA [None]
  - SKIN BLEEDING [None]
  - SPLENECTOMY [None]
  - WEIGHT DECREASED [None]
